FAERS Safety Report 25184000 (Version 2)
Quarter: 2025Q2

REPORT INFORMATION
  Report Type: Spontaneous
  Country: US (occurrence: US)
  Receive Date: 20250410
  Receipt Date: 20250421
  Transmission Date: 20250716
  Serious: Yes (Hospitalization, Other)
  Sender: DOMPE FARMACEUTICI
  Company Number: US-FARMAPROD-202503-0717

PATIENT
  Age: 51 Year
  Sex: Female

DRUGS (29)
  1. OXERVATE [Suspect]
     Active Substance: CENEGERMIN-BKBJ
     Indication: Neurotrophic keratopathy
     Route: 047
     Dates: start: 20230126, end: 20230329
  2. OXERVATE [Suspect]
     Active Substance: CENEGERMIN-BKBJ
     Indication: Hypoaesthesia eye
     Route: 047
     Dates: start: 20250225, end: 20250324
  3. OXERVATE [Suspect]
     Active Substance: CENEGERMIN-BKBJ
     Indication: Ulcerative keratitis
  4. OXERVATE [Suspect]
     Active Substance: CENEGERMIN-BKBJ
  5. RESTASIS [Concomitant]
     Active Substance: CYCLOSPORINE
     Indication: Dry eye
     Dates: start: 20221027
  6. RESTASIS [Concomitant]
     Active Substance: CYCLOSPORINE
  7. OFLOXACIN [Concomitant]
     Active Substance: OFLOXACIN
     Dates: start: 20250210
  8. OFLOXACIN [Concomitant]
     Active Substance: OFLOXACIN
  9. GABAPENTIN [Concomitant]
     Active Substance: GABAPENTIN
  10. GABAPENTIN [Concomitant]
     Active Substance: GABAPENTIN
  11. NORVASC [Concomitant]
     Active Substance: AMLODIPINE BESYLATE
  12. NORVASC [Concomitant]
     Active Substance: AMLODIPINE BESYLATE
  13. ASPIRIN [Concomitant]
     Active Substance: ASPIRIN
  14. ASPIRIN [Concomitant]
     Active Substance: ASPIRIN
  15. ATORVASTATIN CALCIUM [Concomitant]
     Active Substance: ATORVASTATIN CALCIUM
  16. ATORVASTATIN CALCIUM [Concomitant]
     Active Substance: ATORVASTATIN CALCIUM
  17. DULOXETINE HYDROCHLORIDE [Concomitant]
     Active Substance: DULOXETINE HYDROCHLORIDE
     Indication: Neuropathy peripheral
  18. DULOXETINE HYDROCHLORIDE [Concomitant]
     Active Substance: DULOXETINE HYDROCHLORIDE
  19. LANTUS [Concomitant]
     Active Substance: INSULIN GLARGINE
     Indication: Diabetes mellitus
  20. LANTUS [Concomitant]
     Active Substance: INSULIN GLARGINE
  21. LOSARTAN POTASSIUM [Concomitant]
     Active Substance: LOSARTAN POTASSIUM
     Indication: Hypertension
  22. LOSARTAN POTASSIUM [Concomitant]
     Active Substance: LOSARTAN POTASSIUM
  23. SERTRALINE HYDROCHLORIDE [Concomitant]
     Active Substance: SERTRALINE HYDROCHLORIDE
     Indication: Anxiety
  24. SERTRALINE HYDROCHLORIDE [Concomitant]
     Active Substance: SERTRALINE HYDROCHLORIDE
  25. PRED FORTE [Concomitant]
     Active Substance: PREDNISOLONE ACETATE
     Indication: Keratitis
     Dates: start: 20250210
  26. BUPROPION [Concomitant]
     Active Substance: BUPROPION
     Indication: Attention deficit hyperactivity disorder
  27. PREGABALIN [Concomitant]
     Active Substance: PREGABALIN
     Indication: Neuropathy peripheral
  28. CARVEDILOL [Concomitant]
     Active Substance: CARVEDILOL
     Indication: Hypertension
  29. AVASTIN [Concomitant]
     Active Substance: BEVACIZUMAB

REACTIONS (5)
  - Diabetic ketoacidosis [Recovered/Resolved]
  - Kidney infection [Recovered/Resolved]
  - Eye irritation [Unknown]
  - Eye pain [Unknown]
  - Product dose omission issue [Unknown]

NARRATIVE: CASE EVENT DATE: 20250324
